FAERS Safety Report 7871513-5 (Version None)
Quarter: 2011Q4

REPORT INFORMATION
  Report Type: 
  Country: None (occurrence: None)
  Receive Date: 20111029
  Receipt Date: 20110303
  Transmission Date: 20120403
  Serious: No
  Sender: FDA-Public Use
  Company Number: US-AMGEN-USASP2011012130

PATIENT
  Sex: Male

DRUGS (8)
  1. VITAMIN D [Concomitant]
     Dosage: UNK
  2. ASPIRIN [Concomitant]
     Dosage: 81 MG, UNK
  3. PREDNISONE [Concomitant]
     Dosage: 5 MG, UNK
  4. CALCIUM [Concomitant]
     Dosage: UNK
  5. ENBREL [Suspect]
     Indication: PRODUCT USED FOR UNKNOWN INDICATION
     Dosage: 25 MG, 2 TIMES/WK
     Route: 058
  6. VICODIN [Concomitant]
     Dosage: UNK
  7. MULTI-VITAMIN [Concomitant]
     Dosage: UNK
  8. ALEVE [Concomitant]
     Dosage: 220 MG, UNK

REACTIONS (3)
  - INJECTION SITE PAIN [None]
  - INJECTION SITE PRURITUS [None]
  - PNEUMONIA [None]
